FAERS Safety Report 4988018-1 (Version None)
Quarter: 2006Q2

REPORT INFORMATION
  Report Type: 
  Country: None (occurrence: None)
  Receive Date: 20060424
  Receipt Date: 20060407
  Transmission Date: 20061013
  Serious: Yes (Hospitalization)
  Sender: FDA-Public Use
  Company Number: 224241

PATIENT
  Age: 58 Year
  Sex: Female

DRUGS (6)
  1. AVASTIN [Suspect]
     Indication: LUNG ADENOCARCINOMA
     Dosage: INTRAVENOUS
     Route: 042
  2. ATACAND [Concomitant]
  3. GEMZAR [Concomitant]
  4. LOXEN (NICARDIPINE HYDROCHLORIDE) [Concomitant]
  5. CISPLATIN [Concomitant]
  6. ATENOLOL [Concomitant]

REACTIONS (8)
  - BUNDLE BRANCH BLOCK LEFT [None]
  - CHEST X-RAY ABNORMAL [None]
  - HYPERTENSION [None]
  - LOSS OF CONSCIOUSNESS [None]
  - NEUTROPHIL COUNT DECREASED [None]
  - PLATELET COUNT DECREASED [None]
  - VENTRICULAR EXTRASYSTOLES [None]
  - WHITE BLOOD CELL COUNT DECREASED [None]
